FAERS Safety Report 9711141 (Version 1)
Quarter: 2013Q4

REPORT INFORMATION
  Report Type: Spontaneous
  Country: US (occurrence: US)
  Receive Date: 20131126
  Receipt Date: 20131126
  Transmission Date: 20140711
  Serious: No
  Sender: FDA-Public Use
  Company Number: US-BRISTOL-MYERS SQUIBB COMPANY-19159581

PATIENT
  Age: 74 Year
  Sex: 0
  Weight: 73.92 kg

DRUGS (2)
  1. BYETTA PEN DISPOSABLE [Suspect]
     Indication: TYPE 2 DIABETES MELLITUS
     Dosage: 10MCG TWICE DAILY
  2. ACTOS [Concomitant]

REACTIONS (1)
  - Inappropriate schedule of drug administration [Unknown]
